FAERS Safety Report 7595702-2 (Version None)
Quarter: 2011Q3

REPORT INFORMATION
  Report Type: 
  Country: None (occurrence: None)
  Receive Date: 20110707
  Receipt Date: 20110620
  Transmission Date: 20111222
  Serious: No
  Sender: FDA-Public Use
  Company Number: US-B.I. PHARMACEUTICALS,INC./RIDGEFIELD-2011-BP-15939BP

PATIENT
  Age: 75 Year
  Sex: Female

DRUGS (7)
  1. IMDUR [Concomitant]
     Route: 048
  2. COREG [Concomitant]
     Indication: HYPERTENSION
     Route: 048
  3. SIMVASTATIN [Concomitant]
     Indication: BLOOD CHOLESTEROL INCREASED
     Route: 048
  4. RANITIDINE [Concomitant]
     Indication: DYSPEPSIA
     Dosage: 150 MG
     Route: 048
  5. ALDACTONE [Concomitant]
     Route: 048
  6. PRADAXA [Suspect]
     Indication: ATRIAL FIBRILLATION
     Dosage: 300 MG
     Route: 048
     Dates: start: 20110615
  7. ASPIRIN [Concomitant]
     Dosage: 81 MG
     Route: 048

REACTIONS (1)
  - SOMNOLENCE [None]
